FAERS Safety Report 8506436-1 (Version None)
Quarter: 2012Q3

REPORT INFORMATION
  Report Type: 
  Country: None (occurrence: None)
  Receive Date: 20120712
  Receipt Date: 20120627
  Transmission Date: 20120928
  Serious: Yes (Death)
  Sender: FDA-Public Use
  Company Number: JP-ROCHE-1083341

PATIENT
  Age: 69 Year
  Sex: Female

DRUGS (5)
  1. PREDNISOLONE [Concomitant]
     Indication: NON-HODGKIN'S LYMPHOMA
  2. DOXORUBICIN HYDROCHLORIDE [Concomitant]
     Indication: NON-HODGKIN'S LYMPHOMA
  3. RITUXAN [Suspect]
     Indication: NON-HODGKIN'S LYMPHOMA
  4. CYCLOPHOSPHAMIDE [Concomitant]
     Indication: NON-HODGKIN'S LYMPHOMA
  5. VINCRISTINE SULFATE [Concomitant]
     Indication: NON-HODGKIN'S LYMPHOMA

REACTIONS (1)
  - HEPATIC FAILURE [None]
